FAERS Safety Report 6857404-7 (Version None)
Quarter: 2010Q3

REPORT INFORMATION
  Report Type: 
  Country: None (occurrence: None)
  Receive Date: 20100719
  Receipt Date: 20080118
  Transmission Date: 20110219
  Serious: No
  Sender: FDA-Public Use
  Company Number: US-PFIZER INC-2008008514

PATIENT
  Sex: Female
  Weight: 59.09 kg

DRUGS (2)
  1. CHANTIX [Suspect]
     Indication: SMOKING CESSATION THERAPY
     Dates: start: 20080104
  2. PERCOCET [Concomitant]

REACTIONS (12)
  - ANXIETY [None]
  - CHEST PAIN [None]
  - DECREASED APPETITE [None]
  - DEPRESSION [None]
  - DRUG EFFECT DECREASED [None]
  - DYSPEPSIA [None]
  - ENERGY INCREASED [None]
  - INSOMNIA [None]
  - LETHARGY [None]
  - NAUSEA [None]
  - RESTLESSNESS [None]
  - WITHDRAWAL SYNDROME [None]
